FAERS Safety Report 7437129-X (Version None)
Quarter: 2011Q2

REPORT INFORMATION
  Report Type: 
  Country: None (occurrence: None)
  Receive Date: 20110426
  Receipt Date: 20110413
  Transmission Date: 20111010
  Serious: Yes (Other)
  Sender: FDA-Public Use
  Company Number: JP-SANOFI-AVENTIS-2011SA024267

PATIENT
  Sex: Female

DRUGS (1)
  1. MYSLEE [Suspect]
     Route: 048
     Dates: start: 20110402

REACTIONS (3)
  - INCONTINENCE [None]
  - DEPRESSED LEVEL OF CONSCIOUSNESS [None]
  - INTENTIONAL DRUG MISUSE [None]
